FAERS Safety Report 7454899-5 (Version None)
Quarter: 2011Q1

REPORT INFORMATION
  Report Type: 
  Country: None (occurrence: None)
  Receive Date: 20110302
  Receipt Date: 20110120
  Transmission Date: 20110831
  Serious: No
  Sender: FDA-Public Use
  Company Number: 025934

PATIENT
  Sex: Female
  Weight: 48 kg

DRUGS (3)
  1. FLAGYL [Concomitant]
  2. CIMZIA [Suspect]
     Indication: CROHN'S DISEASE
     Dosage: (400 MG 1X/2 WEEKS SUBCUTANEOUS)
     Route: 058
     Dates: start: 20101222
  3. BACTRIM [Concomitant]

REACTIONS (3)
  - INJECTION SITE SWELLING [None]
  - INSOMNIA [None]
  - MYALGIA [None]
